FAERS Safety Report 10129806 (Version 1)
Quarter: 2014Q2

REPORT INFORMATION
  Report Type: Spontaneous
  Country: JP (occurrence: None)
  Receive Date: 20140424
  Receipt Date: 20140424
  Transmission Date: 20141212
  Serious: Yes (Hospitalization)
  Sender: FDA-Public Use
  Company Number: 2014HINLIT0360

PATIENT
  Age: 78 Year
  Sex: Female

DRUGS (2)
  1. LITHIUM (LITHIUM) UNKNOWN [Suspect]
     Indication: BIPOLAR DISORDER
     Dosage: 600MG/DAY, UNKNOWN, DURATION 730 DAYS
  2. CRYSTALLOIDS [Concomitant]
     Dosage: TO RESTORE ADEQUATE HYDRATION AND TISSUE PERFUSION.  (ACTION TAKEN:  UNKNOWN)?

REACTIONS (13)
  - Stress cardiomyopathy [None]
  - Toxicity to various agents [None]
  - Ataxia [None]
  - Tremor [None]
  - Myoclonus [None]
  - Vomiting [None]
  - Loss of consciousness [None]
  - Dehydration [None]
  - Electroencephalogram abnormal [None]
  - Renal impairment [None]
  - Dyspnoea [None]
  - Acute myocardial infarction [None]
  - Left ventricular dysfunction [None]
